FAERS Safety Report 5955920-3 (Version None)
Quarter: 2008Q4

REPORT INFORMATION
  Report Type: 
  Country: None (occurrence: None)
  Receive Date: 20081112
  Receipt Date: 20081031
  Transmission Date: 20090506
  Serious: Yes (Other)
  Sender: FDA-Public Use
  Company Number: 081104-0000862

PATIENT

DRUGS (1)
  1. NEMBUTAL [Suspect]
     Indication: DRUG USE FOR UNKNOWN INDICATION
     Dosage: 100 MG

REACTIONS (2)
  - RENAL FAILURE [None]
  - RESPIRATORY ARREST [None]
